FAERS Safety Report 23171367 (Version 1)
Quarter: 2023Q4

REPORT INFORMATION
  Report Type: Spontaneous
  Country: US (occurrence: US)
  Receive Date: 20231110
  Receipt Date: 20231110
  Transmission Date: 20240110
  Serious: Yes (Other)
  Sender: FDA-Public Use
  Company Number: US-HIKMA PHARMACEUTICALS USA INC.-US-H14001-23-66763

PATIENT

DRUGS (1)
  1. LIDOCAINE VISCOUS [Suspect]
     Active Substance: LIDOCAINE HYDROCHLORIDE
     Indication: Impaired gastric emptying
     Dosage: UNK
     Route: 065

REACTIONS (4)
  - Migraine [Unknown]
  - Abdominal pain upper [Unknown]
  - Drug interaction [Unknown]
  - Pain [Unknown]
